FAERS Safety Report 8695069 (Version 2)
Quarter: 2013Q4

REPORT INFORMATION
  Report Type: Spontaneous
  Country: US (occurrence: US)
  Receive Date: 20120731
  Receipt Date: 20131031
  Transmission Date: 20140711
  Serious: No
  Sender: FDA-Public Use
  Company Number: US-009507513-2012SP033953

PATIENT
  Age: 26 Year
  Sex: Female
  Weight: 151.5 kg

DRUGS (1)
  1. IMPLANON [Suspect]
     Indication: CONTRACEPTION
     Dates: start: 2009

REACTIONS (2)
  - Medical device complication [Not Recovered/Not Resolved]
  - No adverse event [Unknown]
